FAERS Safety Report 16624617 (Version 1)
Quarter: 2019Q3

REPORT INFORMATION
  Report Type: Spontaneous
  Country: US (occurrence: US)
  Receive Date: 20190611
  Receipt Date: 20190611
  Transmission Date: 20191004
  Serious: No
  Sender: FDA-Public Use
  Company Number: None

PATIENT
  Age: 67 Week
  Sex: Female
  Weight: 53.07 kg

DRUGS (2)
  1. STELARA [Suspect]
     Active Substance: USTEKINUMAB
     Indication: PSORIATIC ARTHROPATHY
     Dosage: ?          OTHER FREQUENCY:DAY 0\T\DAY 28 AS ;?
     Route: 058
     Dates: start: 201807
  2. STELARA [Suspect]
     Active Substance: USTEKINUMAB
     Indication: PSORIASIS

REACTIONS (1)
  - Gastrointestinal disorder [None]
